FAERS Safety Report 6334440-0 (Version None)
Quarter: 2009Q3

REPORT INFORMATION
  Report Type: 
  Country: None (occurrence: None)
  Receive Date: 20090827
  Receipt Date: 20090818
  Transmission Date: 20100115
  Serious: Yes (Death)
  Sender: FDA-Public Use
  Company Number: OPER20090154

PATIENT
  Age: 48 Year
  Sex: Male

DRUGS (1)
  1. OPANA ER [Suspect]
     Indication: BACK PAIN
     Dosage: 40 MG, 1 TAB BID

REACTIONS (1)
  - UNRESPONSIVE TO STIMULI [None]
